FAERS Safety Report 5729026-2 (Version None)
Quarter: 2008Q2

REPORT INFORMATION
  Report Type: 
  Country: None (occurrence: None)
  Receive Date: 20080505
  Receipt Date: 20080505
  Transmission Date: 20081010
  Serious: Yes (Hospitalization)
  Sender: FDA-Public Use
  Company Number: None

PATIENT
  Age: 58 Year
  Sex: Female
  Weight: 68.9467 kg

DRUGS (1)
  1. CELEBREX [Suspect]
     Indication: RIB FRACTURE
     Dosage: 200MG QD PO
     Route: 048
     Dates: start: 20080407

REACTIONS (3)
  - ANAPHYLACTIC REACTION [None]
  - PRESYNCOPE [None]
  - PRURITUS [None]
